FAERS Safety Report 12600658 (Version 1)
Quarter: 2016Q3

REPORT INFORMATION
  Report Type: Spontaneous
  Country: US (occurrence: US)
  Receive Date: 20160727
  Receipt Date: 20160727
  Transmission Date: 20161109
  Serious: Yes (Disabling)
  Sender: FDA-Public Use
  Company Number: US-BAUSCH-BL-2016-012816

PATIENT
  Age: 53 Year
  Sex: Male
  Weight: 61.29 kg

DRUGS (3)
  1. ALPRAZOLAM. [Concomitant]
     Active Substance: ALPRAZOLAM
     Indication: PRODUCT USED FOR UNKNOWN INDICATION
  2. BUPROPION XL [Suspect]
     Active Substance: BUPROPION
     Indication: DEPRESSION
     Route: 048
     Dates: start: 201505, end: 201506
  3. BUPROPION XL [Suspect]
     Active Substance: BUPROPION
     Dosage: INCREASED FROM 150MG DAILY TWO AND ONE-HALF WEEKS PRIOR
     Route: 065

REACTIONS (2)
  - Dysphemia [Recovered/Resolved]
  - Condition aggravated [Recovered/Resolved]

NARRATIVE: CASE EVENT DATE: 20150601
